FAERS Safety Report 20061031 (Version 1)
Quarter: 2021Q4

REPORT INFORMATION
  Report Type: Spontaneous
  Country: CZ (occurrence: CZ)
  Receive Date: 20211112
  Receipt Date: 20211112
  Transmission Date: 20220303
  Serious: Yes (Other)
  Sender: FDA-Public Use
  Company Number: CZ-PFIZER INC-202101062760

PATIENT
  Age: 1 Year
  Sex: Female
  Weight: 6.6 kg

DRUGS (4)
  1. GENTAMICIN [Suspect]
     Active Substance: GENTAMICIN
     Indication: Antibiotic therapy
     Route: 065
     Dates: start: 2021, end: 2021
  2. UNASYN [Suspect]
     Active Substance: AMPICILLIN SODIUM\SULBACTAM SODIUM
     Indication: Antibiotic therapy
     Dosage: UNK
     Route: 065
     Dates: start: 2021, end: 2021
  3. ZOLGENSMA [ONASEMNOGENE ABEPARVOVEC XIOI] [Concomitant]
     Indication: Spinal muscular atrophy
     Dosage: UNK
  4. SPINRAZA [Concomitant]
     Active Substance: NUSINERSEN
     Indication: Spinal muscular atrophy
     Dosage: UNK

REACTIONS (6)
  - Pseudomonas test positive [Unknown]
  - Aspiration [Unknown]
  - Decreased appetite [Unknown]
  - Dysphagia [Unknown]
  - Inflammatory marker increased [Unknown]
  - Pyrexia [Unknown]

NARRATIVE: CASE EVENT DATE: 20210101
